FAERS Safety Report 7493132-5 (Version None)
Quarter: 2011Q2

REPORT INFORMATION
  Report Type: 
  Country: None (occurrence: None)
  Receive Date: 20110519
  Receipt Date: 20110519
  Transmission Date: 20111010
  Serious: No
  Sender: FDA-Public Use
  Company Number: None

PATIENT
  Age: 64 Year
  Sex: Male

DRUGS (3)
  1. INFLIXIMAB [Suspect]
     Indication: ACUTE GRAFT VERSUS HOST DISEASE IN SKIN
     Dosage: 900MG IN 250ML NS OVER
     Dates: start: 20110426
  2. INFLIXIMAB [Suspect]
     Indication: ACUTE GRAFT VERSUS HOST DISEASE IN LIVER
     Dosage: 900MG IN 250ML NS OVER
     Dates: start: 20110426
  3. INFLIXIMAB [Suspect]
     Indication: ACUTE GRAFT VERSUS HOST DISEASE IN INTESTINE
     Dosage: 900MG IN 250ML NS OVER
     Dates: start: 20110426

REACTIONS (5)
  - ANAPHYLACTIC REACTION [None]
  - HYPOTENSION [None]
  - INFUSION RELATED REACTION [None]
  - TACHYCARDIA [None]
  - LOSS OF CONSCIOUSNESS [None]
